FAERS Safety Report 20818304 (Version 1)
Quarter: 2022Q2

REPORT INFORMATION
  Report Type: Spontaneous
  Country: US (occurrence: None)
  Receive Date: 20220511
  Receipt Date: 20220511
  Transmission Date: 20220721
  Serious: Yes (Hospitalization)
  Sender: FDA-Public Use
  Company Number: None

PATIENT
  Sex: Female

DRUGS (19)
  1. TOBRAMYCIN [Suspect]
     Active Substance: TOBRAMYCIN
     Indication: Cystic fibrosis
     Dosage: INHALE 4 ML VIA NEBULIZER TWICE DAILY FOR 28 DAYS ON, 28 DAYS OFF?
     Route: 055
     Dates: start: 20210511
  2. TOBRAMYCIN [Suspect]
     Active Substance: TOBRAMYCIN
     Dosage: OTHER FREQUENCY : 28 D ON, 28D OFF;?
     Route: 055
  3. ALDACTONE [Concomitant]
     Active Substance: SPIRONOLACTONE
  4. BACTRIM DS [Concomitant]
     Active Substance: SULFAMETHOXAZOLE\TRIMETHOPRIM
  5. CULTURELL [Concomitant]
  6. CYPROHEPTADINE HYDROCHLORIDE [Concomitant]
     Active Substance: CYPROHEPTADINE HYDROCHLORIDE
  7. DEKAS PLUS [Concomitant]
  8. ERGOCALCIFER [Concomitant]
  9. HYOSCYAMINE [Concomitant]
     Active Substance: HYOSCYAMINE
  10. HYPERSAL NEB [Concomitant]
  11. MELATONIN [Concomitant]
     Active Substance: MELATONIN
  12. MEPHYTON [Concomitant]
     Active Substance: PHYTONADIONE
  13. OMEPRAZOLE [Concomitant]
     Active Substance: OMEPRAZOLE
  14. POLYETH GLYC POW [Concomitant]
  15. PROAIR HFA [Concomitant]
     Active Substance: ALBUTEROL SULFATE
  16. PULMOZYME SOL [Concomitant]
  17. TRIKAFTA [Concomitant]
     Active Substance: ELEXACAFTOR\IVACAFTOR\TEZACAFTOR
  18. URSPDOIOL [Concomitant]
  19. ZENPEP [Concomitant]
     Active Substance: PANCRELIPASE AMYLASE\PANCRELIPASE LIPASE\PANCRELIPASE PROTEASE

REACTIONS (1)
  - Hospitalisation [None]
